FAERS Safety Report 4970336-4 (Version None)
Quarter: 2006Q2

REPORT INFORMATION
  Report Type: 
  Country: None (occurrence: None)
  Receive Date: 20060412
  Receipt Date: 20060308
  Transmission Date: 20061013
  Serious: Yes (Hospitalization, Other)
  Sender: FDA-Public Use
  Company Number: US-AMGEN-US170041

PATIENT
  Sex: Male
  Weight: 88.5 kg

DRUGS (13)
  1. EPOGEN [Suspect]
     Indication: DIALYSIS
     Route: 058
     Dates: start: 20030909
  2. IRON [Concomitant]
     Route: 042
     Dates: start: 20051201
  3. SENSIPAR [Concomitant]
     Indication: HYPERPARATHYROIDISM SECONDARY
     Route: 048
     Dates: start: 20050427
  4. LISINOPRIL [Concomitant]
     Dates: start: 20041119
  5. NORVASC [Concomitant]
     Dates: start: 20050111
  6. LEVOXYL [Concomitant]
     Dates: start: 20051111
  7. PREVACID [Concomitant]
     Dates: start: 20051019
  8. NEURONTIN [Concomitant]
     Dates: start: 20051119
  9. LABETALOL HCL [Concomitant]
     Dates: start: 20040223
  10. CATAPRES-TTS-1 [Concomitant]
     Dates: start: 20060223
  11. FOSRENOL [Concomitant]
     Dates: start: 20060223
  12. PHOSLO [Concomitant]
  13. DIOVAN [Concomitant]

REACTIONS (4)
  - COLON ADENOMA [None]
  - PERITONEAL DIALYSIS [None]
  - PERITONITIS [None]
  - THERAPEUTIC RESPONSE DECREASED [None]
